FAERS Safety Report 19907170 (Version 1)
Quarter: 2021Q3

REPORT INFORMATION
  Report Type: Spontaneous
  Country: US (occurrence: US)
  Receive Date: 20210930
  Receipt Date: 20210930
  Transmission Date: 20211014
  Serious: Yes (Other)
  Sender: FDA-Public Use
  Company Number: US-REGENERON PHARMACEUTICALS, INC.-2021-88682

PATIENT

DRUGS (3)
  1. EYLEA [Suspect]
     Active Substance: AFLIBERCEPT
     Indication: MACULAR DEGENERATION
     Dosage: 2 MG, Q4W
     Route: 031
     Dates: start: 2021
  2. LISINOPRIL. [Concomitant]
     Active Substance: LISINOPRIL
     Indication: PRODUCT USED FOR UNKNOWN INDICATION
     Dosage: 20 MG, BID
     Route: 048
  3. EYLEA [Suspect]
     Active Substance: AFLIBERCEPT
     Dosage: 2 MG, Q4W
     Route: 031
     Dates: start: 20210915, end: 20210915

REACTIONS (11)
  - Injection site pain [Not Recovered/Not Resolved]
  - Renal impairment [Unknown]
  - Hypoaesthesia [Not Recovered/Not Resolved]
  - Eye haemorrhage [Unknown]
  - Eye irritation [Recovered/Resolved]
  - Visual acuity reduced transiently [Recovered/Resolved]
  - Urine output decreased [Unknown]
  - Injection site erythema [Recovered/Resolved]
  - Procedural complication [Unknown]
  - Eye discharge [Recovered/Resolved]
  - Headache [Not Recovered/Not Resolved]

NARRATIVE: CASE EVENT DATE: 202108
